FAERS Safety Report 13591745 (Version 1)
Quarter: 2017Q2

REPORT INFORMATION
  Report Type: Spontaneous
  Country: EG (occurrence: EG)
  Receive Date: 20170530
  Receipt Date: 20170530
  Transmission Date: 20170830
  Serious: Yes (Other)
  Sender: FDA-Public Use
  Company Number: EG-PFIZER INC-2017231264

PATIENT
  Age: 56 Year
  Sex: Female

DRUGS (5)
  1. INSULIN [Concomitant]
     Active Substance: INSULIN NOS
     Dosage: UNK
  2. CONCOR 5 PLUS [Concomitant]
     Dosage: UNK
  3. ANZATAX [Suspect]
     Active Substance: PACLITAXEL
     Dosage: 150 MG, UNK
  4. JANUMET [Concomitant]
     Active Substance: METFORMIN HYDROCHLORIDE\SITAGLIPTIN PHOSPHATE
     Dosage: UNK
  5. BISOCARD PLUS [Concomitant]
     Dosage: UNK

REACTIONS (3)
  - Cyanosis [Recovered/Resolved]
  - Anaphylactic shock [Recovered/Resolved]
  - Cardiac arrest [Recovered/Resolved]
